FAERS Safety Report 20344658 (Version 1)
Quarter: 2022Q1

REPORT INFORMATION
  Report Type: Report from Study
  Country: EG (occurrence: EG)
  Receive Date: 20220118
  Receipt Date: 20220118
  Transmission Date: 20220423
  Serious: Yes (Other)
  Sender: FDA-Public Use
  Company Number: EG-NOVARTISPH-NVSC2022EG002166

PATIENT
  Age: 75 Year
  Sex: Female

DRUGS (4)
  1. KISQALI [Suspect]
     Active Substance: RIBOCICLIB
     Indication: Breast cancer metastatic
     Dosage: 200 MG (3 TABLET PER DAY)
     Route: 048
     Dates: start: 20211209
  2. AROMASIN [Concomitant]
     Active Substance: EXEMESTANE
     Indication: Product used for unknown indication
     Dosage: UNK (PER DAY/MONTH ONCE DAILY)
     Route: 065
  3. TEGRETOL [Concomitant]
     Active Substance: CARBAMAZEPINE
     Indication: Product used for unknown indication
     Dosage: UNK UNK, QD (SR)
     Route: 065
  4. IBRANCE [Concomitant]
     Active Substance: PALBOCICLIB
     Indication: Product used for unknown indication
     Dosage: UNK (STOPPED BEFORE USE OF KISQALI WITH 2 WEEKS)
     Route: 065

REACTIONS (4)
  - Dermatitis allergic [Recovering/Resolving]
  - Spinal pain [Recovering/Resolving]
  - Headache [Recovered/Resolved]
  - Abdominal pain [Recovered/Resolved]

NARRATIVE: CASE EVENT DATE: 20211209
